FAERS Safety Report 18834418 (Version 1)
Quarter: 2021Q1

REPORT INFORMATION
  Report Type: Spontaneous
  Country: US (occurrence: US)
  Receive Date: 20210202
  Receipt Date: 20210202
  Transmission Date: 20210419
  Serious: No
  Sender: FDA-Public Use
  Company Number: None

PATIENT
  Age: 17 Year
  Sex: Male
  Weight: 59.5 kg

DRUGS (2)
  1. RUFINAMIDE 40MG/ML [Suspect]
     Active Substance: RUFINAMIDE
     Indication: EPILEPSY
     Route: 048
     Dates: start: 20201123, end: 20201202
  2. RUFINAMIDE 40MG/ML [Suspect]
     Active Substance: RUFINAMIDE
     Indication: PARTIAL SEIZURES
     Route: 048
     Dates: start: 20201202

REACTIONS (2)
  - Drug intolerance [None]
  - Product substitution issue [None]

NARRATIVE: CASE EVENT DATE: 20201130
